FAERS Safety Report 6354080-7 (Version None)
Quarter: 2009Q3

REPORT INFORMATION
  Report Type: 
  Country: None (occurrence: None)
  Receive Date: 20090908
  Receipt Date: 20090826
  Transmission Date: 20100115
  Serious: Yes (Hospitalization)
  Sender: FDA-Public Use
  Company Number: 20097217

PATIENT
  Sex: Female

DRUGS (1)
  1. LIORESAL [Suspect]
     Indication: MUSCLE SPASTICITY
     Dosage: DAILY, INTRATHECAL
     Route: 037

REACTIONS (9)
  - BALANCE DISORDER [None]
  - CATHETER RELATED COMPLICATION [None]
  - DEVICE MALFUNCTION [None]
  - FALL [None]
  - MIGRAINE [None]
  - MUSCLE SPASTICITY [None]
  - NO THERAPEUTIC RESPONSE [None]
  - PRURITUS [None]
  - UNDERDOSE [None]
